FAERS Safety Report 9275077 (Version 1)
Quarter: 2013Q2

REPORT INFORMATION
  Report Type: Spontaneous
  Country: US (occurrence: US)
  Receive Date: 20130507
  Receipt Date: 20130507
  Transmission Date: 20140414
  Serious: No
  Sender: FDA-Public Use
  Company Number: US-BAYER-2013-056654

PATIENT
  Age: 55 Year
  Sex: Male

DRUGS (3)
  1. AVELOX [Suspect]
     Indication: PYREXIA
     Dosage: 400 MG, QD
     Route: 048
     Dates: start: 20130411, end: 201304
  2. AVELOX [Suspect]
     Indication: UNEVALUABLE EVENT
  3. LISINOPRIL [Concomitant]

REACTIONS (2)
  - Ageusia [Not Recovered/Not Resolved]
  - Anosmia [Not Recovered/Not Resolved]
